FAERS Safety Report 9731215 (Version 2)
Quarter: 2014Q1

REPORT INFORMATION
  Report Type: Spontaneous
  Country: US (occurrence: US)
  Receive Date: 20131203
  Receipt Date: 20140103
  Transmission Date: 20141002
  Serious: Yes (Other)
  Sender: FDA-Public Use
  Company Number: PHEH2013US024784

PATIENT
  Sex: Male
  Weight: 83.9 kg

DRUGS (4)
  1. GILENYA [Suspect]
  2. BETASERON [Suspect]
  3. LOVASTATIN [Concomitant]
  4. VITAMIN D [Concomitant]
     Dosage: 5000 IU, QW

REACTIONS (10)
  - Intervertebral disc degeneration [Unknown]
  - Memory impairment [Unknown]
  - Dysgraphia [Unknown]
  - Ligament sprain [Unknown]
  - Dysstasia [Unknown]
  - Visual acuity reduced [Unknown]
  - Scar [Unknown]
  - Dry eye [Unknown]
  - Back pain [Unknown]
  - Asthenia [Unknown]
